FAERS Safety Report 5851941-X (Version None)
Quarter: 2008Q3

REPORT INFORMATION
  Report Type: 
  Country: None (occurrence: None)
  Receive Date: 20080820
  Receipt Date: 20080808
  Transmission Date: 20090109
  Serious: Yes (Other)
  Sender: FDA-Public Use
  Company Number: US-PFIZER INC-2008060108

PATIENT

DRUGS (4)
  1. CHANTIX [Suspect]
  2. ANTIINFLAMMATORY/ANTIRHEUMATIC PRODUCTS [Concomitant]
  3. ANALGESICS [Concomitant]
  4. PREDNISONE TAB [Concomitant]

REACTIONS (6)
  - CONTUSION [None]
  - DERMATITIS CONTACT [None]
  - FALL [None]
  - FATIGUE [None]
  - INJURY [None]
  - NAUSEA [None]
